FAERS Safety Report 9641800 (Version 1)
Quarter: 2013Q4

REPORT INFORMATION
  Report Type: Spontaneous
  Country: FR (occurrence: None)
  Receive Date: 20131021
  Receipt Date: 20131021
  Transmission Date: 20140711
  Serious: Yes (Hospitalization, Other)
  Sender: FDA-Public Use
  Company Number: CIP-2013-00189

PATIENT
  Age: 47 Year
  Sex: Male

DRUGS (4)
  1. CARBOPLATIN INJECTION DRY (CARBOPLATIN) [Suspect]
     Indication: FUNGAL INFECTION
  2. DEXAMETHASONE (DEXAMETHASONE) [Suspect]
  3. DEXAMETHASONE (DEXAMETHASONE) [Suspect]
     Indication: FUNGAL INFECTION
  4. CYTARABINE (CYTARABINE) [Suspect]
     Indication: FUNGAL INFECTION

REACTIONS (3)
  - Febrile neutropenia [None]
  - Rash pustular [None]
  - Leukocytosis [None]
